FAERS Safety Report 8247358-3 (Version None)
Quarter: 2012Q1

REPORT INFORMATION
  Report Type: 
  Country: None (occurrence: None)
  Receive Date: 20120328
  Receipt Date: 20120328
  Transmission Date: 20120608
  Serious: No
  Sender: FDA-Public Use
  Company Number: None

PATIENT
  Age: 24 Year
  Sex: Female

DRUGS (1)
  1. NITROFURANTOIN [Suspect]
     Dates: start: 20100613, end: 20100617

REACTIONS (7)
  - MATERNAL EXPOSURE DURING PREGNANCY [None]
  - HYDRONEPHROSIS [None]
  - CAESAREAN SECTION [None]
  - HEPATIC STEATOSIS [None]
  - GLUCOSE-6-PHOSPHATE DEHYDROGENASE DEFICIENCY [None]
  - HAEMOLYTIC ANAEMIA [None]
  - BONE MARROW FAILURE [None]
